FAERS Safety Report 7554433-5 (Version None)
Quarter: 2011Q2

REPORT INFORMATION
  Report Type: 
  Country: None (occurrence: None)
  Receive Date: 20110617
  Receipt Date: 20100806
  Transmission Date: 20111010
  Serious: Yes (Hospitalization, Disabling)
  Sender: FDA-Public Use
  Company Number: A0875799A

PATIENT
  Age: 60 Year
  Sex: Female

DRUGS (1)
  1. AVANDAMET [Suspect]
     Indication: DIABETES MELLITUS
     Route: 048
     Dates: start: 20061128, end: 20070613

REACTIONS (7)
  - TRANSIENT ISCHAEMIC ATTACK [None]
  - DIZZINESS [None]
  - CORONARY ARTERY BYPASS [None]
  - BLINDNESS [None]
  - MYOCARDIAL INFARCTION [None]
  - STENT PLACEMENT [None]
  - IMMOBILE [None]
